FAERS Safety Report 8610898-9 (Version None)
Quarter: 2012Q3

REPORT INFORMATION
  Report Type: 
  Country: None (occurrence: None)
  Receive Date: 20120822
  Receipt Date: 20120809
  Transmission Date: 20120928
  Serious: Yes (Hospitalization)
  Sender: FDA-Public Use
  Company Number: US-BRISTOL-MYERS SQUIBB COMPANY-16844730

PATIENT
  Age: 47 Year
  Sex: Female
  Weight: 79 kg

DRUGS (6)
  1. DIGOXIN [Concomitant]
  2. COUMADIN [Suspect]
  3. TREPROSTINIL [Suspect]
     Indication: PULMONARY ARTERIAL HYPERTENSION
     Dosage: 10MG/ML INJ FOR INF,93.6MCG/KG;20DEC11-UNK,106.56MCG/KG;0.074MCG/KG;01AUG12-UNK
     Route: 058
     Dates: start: 20111220
  4. LETAIRIS [Suspect]
     Dosage: TABS
     Route: 048
     Dates: start: 20090119
  5. REVATIO [Concomitant]
  6. SPIRONOLACTONE [Concomitant]

REACTIONS (4)
  - COMPARTMENT SYNDROME [None]
  - INTERNATIONAL NORMALISED RATIO INCREASED [None]
  - MUSCLE HAEMORRHAGE [None]
  - OVERDOSE [None]
